FAERS Safety Report 10268212 (Version 1)
Quarter: 2014Q2

REPORT INFORMATION
  Report Type: Spontaneous
  Country: GB (occurrence: GB)
  Receive Date: 20140630
  Receipt Date: 20140630
  Transmission Date: 20141212
  Serious: Yes (Other)
  Sender: FDA-Public Use
  Company Number: GB-WATSON-2014-13690

PATIENT
  Age: 69 Year
  Sex: Female

DRUGS (2)
  1. IMATINIB (UNKNOWN) [Suspect]
     Indication: CHRONIC MYELOID LEUKAEMIA
     Dosage: 400 MG, UNKNOWN
     Route: 048
     Dates: start: 20140314, end: 20140508
  2. OMEPRAZOLE (UNKNOWN) [Suspect]
     Indication: GASTROOESOPHAGEAL REFLUX DISEASE
     Dosage: 20 MG, UNKNOWN
     Route: 048
     Dates: start: 20140321, end: 20140508

REACTIONS (1)
  - Transaminases increased [Recovered/Resolved]
